FAERS Safety Report 4268191-3 (Version None)
Quarter: 2004Q1

REPORT INFORMATION
  Report Type: 
  Country: None (occurrence: None)
  Receive Date: 20040109
  Receipt Date: 20031124
  Transmission Date: 20041129
  Serious: Yes (Other)
  Sender: FDA-Public Use
  Company Number: WAES 0311FRA00065

PATIENT
  Age: 85 Year
  Sex: Female

DRUGS (4)
  1. CAPTOPRIL [Concomitant]
     Indication: CARDIAC FAILURE CONGESTIVE
     Route: 048
  2. DIGOXIN [Concomitant]
     Indication: CARDIAC FAILURE CONGESTIVE
     Route: 048
  3. FUROSEMIDE [Concomitant]
     Indication: CARDIAC FAILURE CONGESTIVE
     Route: 048
  4. VIOXX [Suspect]
     Route: 048
     Dates: start: 20031106, end: 20031108

REACTIONS (2)
  - DERMATITIS BULLOUS [None]
  - MULTIPLE MYELOMA [None]
